FAERS Safety Report 17002212 (Version 1)
Quarter: 2019Q4

REPORT INFORMATION
  Report Type: Spontaneous
  Country: GB (occurrence: GB)
  Receive Date: 20191106
  Receipt Date: 20191106
  Transmission Date: 20200122
  Serious: Yes (Life-Threatening, Hospitalization, Disabling, Other)
  Sender: FDA-Public Use
  Company Number: GB-OTSUKA-2019_037618

PATIENT
  Age: 33 Year
  Sex: Male
  Weight: 155.6 kg

DRUGS (2)
  1. OLANZAPINE. [Suspect]
     Active Substance: OLANZAPINE
     Indication: MENTAL IMPAIRMENT
     Dosage: 10 MG, UNK
     Route: 048
     Dates: start: 20090911, end: 20100414
  2. ARIPIPRAZOLE. [Suspect]
     Active Substance: ARIPIPRAZOLE
     Indication: MENTAL DISORDER
     Dosage: 300 MG, UNK
     Route: 051

REACTIONS (6)
  - Blood cholesterol increased [Unknown]
  - Diabetes mellitus [Unknown]
  - Product use in unapproved indication [Unknown]
  - Abnormal weight gain [Unknown]
  - Deep vein thrombosis [Unknown]
  - Blood creatine phosphokinase increased [Unknown]
